FAERS Safety Report 24878188 (Version 2)
Quarter: 2025Q1

REPORT INFORMATION
  Report Type: Report from Study
  Country: US (occurrence: US)
  Receive Date: 20250123
  Receipt Date: 20250311
  Transmission Date: 20250408
  Serious: Yes (Other)
  Sender: TAKEDA
  Company Number: US-TAKEDA-2024TUS130923

PATIENT
  Age: 45 Year
  Sex: Female
  Weight: 61.23 kg

DRUGS (14)
  1. LANADELUMAB [Suspect]
     Active Substance: LANADELUMAB
     Indication: Immune system disorder
     Dosage: 300 MILLIGRAM, Q2WEEKS
     Dates: start: 20240726
  2. LANADELUMAB [Suspect]
     Active Substance: LANADELUMAB
  3. LANADELUMAB [Suspect]
     Active Substance: LANADELUMAB
  4. CORTEF [Concomitant]
     Active Substance: HYDROCORTISONE
  5. FAMOTIDINE [Concomitant]
     Active Substance: FAMOTIDINE
  6. HUMALOG [Concomitant]
     Active Substance: INSULIN LISPRO
  7. MOTEGRITY [Concomitant]
     Active Substance: PRUCALOPRIDE SUCCINATE
  8. CREON [Concomitant]
     Active Substance: PANCRELIPASE AMYLASE\PANCRELIPASE LIPASE\PANCRELIPASE PROTEASE
  9. AZELASTINE HYDROCHLORIDE [Concomitant]
     Active Substance: AZELASTINE HYDROCHLORIDE
  10. METHOTREXATE [Concomitant]
     Active Substance: METHOTREXATE
  11. LEVOTHYROXINE SODIUM [Concomitant]
     Active Substance: LEVOTHYROXINE SODIUM
  12. TORSEMIDE [Concomitant]
     Active Substance: TORSEMIDE
  13. ZYRTEC [Concomitant]
     Active Substance: CETIRIZINE HYDROCHLORIDE
  14. ICATIBANT [Concomitant]
     Active Substance: ICATIBANT ACETATE

REACTIONS (6)
  - Ophthalmic herpes zoster [Unknown]
  - Blood glucose decreased [Unknown]
  - Gluten sensitivity [Unknown]
  - Gastroenteritis viral [Unknown]
  - Vomiting [Unknown]
  - Hereditary angioedema [Unknown]

NARRATIVE: CASE EVENT DATE: 20241214
